FAERS Safety Report 7735147-5 (Version None)
Quarter: 2011Q3

REPORT INFORMATION
  Report Type: 
  Country: None (occurrence: None)
  Receive Date: 20110907
  Receipt Date: 20110906
  Transmission Date: 20111222
  Serious: Yes (Other)
  Sender: FDA-Public Use
  Company Number: CR-ABBOTT-11P-039-0841045-00

PATIENT
  Age: 61 Year
  Sex: Male

DRUGS (1)
  1. LEUPROLIDE ACETATE [Suspect]
     Indication: PROSTATE CANCER
     Route: 030
     Dates: start: 20101101, end: 20110401

REACTIONS (2)
  - JOINT SWELLING [None]
  - ARTHRALGIA [None]
